FAERS Safety Report 25807082 (Version 2)
Quarter: 2025Q4

REPORT INFORMATION
  Report Type: Report from Study
  Country: US (occurrence: US)
  Receive Date: 20250916
  Receipt Date: 20251022
  Transmission Date: 20260118
  Serious: Yes (Hospitalization)
  Sender: ROCHE
  Company Number: US-ROCHE-10000348155

PATIENT
  Age: 76 Year
  Sex: Female

DRUGS (2)
  1. ACTEMRA ACTPEN [Suspect]
     Active Substance: TOCILIZUMAB
     Indication: Giant cell arteritis
     Dosage: INJECT 162MG (0.9ML) SUBCUTANEOUSLY EVERY TUESDAY
     Route: 058
  2. PREDNISONE [Concomitant]
     Active Substance: PREDNISONE
     Dates: start: 202203

REACTIONS (7)
  - Nerve compression [Unknown]
  - Anxiety [Unknown]
  - Contusion [Unknown]
  - Oral disorder [Unknown]
  - Fall [Unknown]
  - Colitis [Unknown]
  - Feeling abnormal [Not Recovered/Not Resolved]

NARRATIVE: CASE EVENT DATE: 20230601
